FAERS Safety Report 11752828 (Version 1)
Quarter: 2015Q4

REPORT INFORMATION
  Report Type: Report from Study
  Country: FR (occurrence: FR)
  Receive Date: 20151119
  Receipt Date: 20151119
  Transmission Date: 20160304
  Serious: Yes (Other)
  Sender: FDA-Public Use
  Company Number: FR-ROCHE-1662384

PATIENT
  Age: 72 Year
  Sex: Female

DRUGS (1)
  1. MABTHERA [Suspect]
     Active Substance: RITUXIMAB
     Indication: B-CELL LYMPHOMA
     Route: 065

REACTIONS (3)
  - Drug ineffective [Unknown]
  - Drug resistance [Unknown]
  - B-cell lymphoma recurrent [Unknown]

NARRATIVE: CASE EVENT DATE: 2015
